FAERS Safety Report 6583254-5 (Version None)
Quarter: 2010Q1

REPORT INFORMATION
  Report Type: 
  Country: None (occurrence: None)
  Receive Date: 20100216
  Receipt Date: 20080927
  Transmission Date: 20100710
  Serious: Yes (Other)
  Sender: FDA-Public Use
  Company Number: A0710060A

PATIENT
  Sex: Male
  Weight: 66 kg

DRUGS (3)
  1. LAPATINIB [Suspect]
     Dosage: 1500MG PER DAY
     Route: 048
     Dates: start: 20080115
  2. CISPLATIN [Suspect]
     Dosage: 100MGM2 CYCLIC
     Route: 042
     Dates: start: 20080122
  3. RADIATION [Suspect]
     Dosage: 2GY PER DAY
     Route: 061
     Dates: start: 20080122

REACTIONS (1)
  - MUCOSAL INFLAMMATION [None]
